FAERS Safety Report 7980043-1 (Version None)
Quarter: 2011Q4

REPORT INFORMATION
  Report Type: 
  Country: None (occurrence: None)
  Receive Date: 20111212
  Receipt Date: 20111201
  Transmission Date: 20120403
  Serious: Yes (Other)
  Sender: FDA-Public Use
  Company Number: 2011S1000338

PATIENT
  Sex: Male

DRUGS (2)
  1. INOMAX [Suspect]
  2. INOMAX [Suspect]
     Indication: PULMONARY ARTERIAL PRESSURE INCREASED
     Dosage: 40 PPM;CONT;INH
     Route: 055
     Dates: start: 20111017

REACTIONS (7)
  - MEAN ARTERIAL PRESSURE DECREASED [None]
  - PULMONARY ARTERIAL WEDGE PRESSURE INCREASED [None]
  - CARDIAC INDEX DECREASED [None]
  - DEVICE ALARM ISSUE [None]
  - PULMONARY ARTERIAL PRESSURE INCREASED [None]
  - DEVICE MALFUNCTION [None]
  - CENTRAL VENOUS PRESSURE INCREASED [None]
